FAERS Safety Report 24222600 (Version 1)
Quarter: 2024Q3

REPORT INFORMATION
  Report Type: Spontaneous
  Country: IN (occurrence: IN)
  Receive Date: 20240819
  Receipt Date: 20240819
  Transmission Date: 20241017
  Serious: Yes (Other)
  Sender: MYLAN
  Company Number: IN-MYLANLABS-2024M1076241

PATIENT
  Age: 77 Year
  Sex: Male

DRUGS (4)
  1. GEMCITABINE [Suspect]
     Active Substance: GEMCITABINE
     Indication: Transitional cell carcinoma metastatic
     Dosage: UNK, RECEIVED ON DAY 1 AND 8 OF CYCLE
     Route: 065
     Dates: start: 202111, end: 202204
  2. GEMCITABINE [Suspect]
     Active Substance: GEMCITABINE
     Indication: FGFR3 gene mutation
  3. CARBOPLATIN [Suspect]
     Active Substance: CARBOPLATIN
     Indication: Transitional cell carcinoma metastatic
     Dosage: UNK
     Route: 065
     Dates: start: 202111, end: 202204
  4. CARBOPLATIN [Suspect]
     Active Substance: CARBOPLATIN
     Indication: FGFR3 gene mutation

REACTIONS (1)
  - Drug ineffective [Unknown]
